FAERS Safety Report 4503483-1 (Version None)
Quarter: 2004Q4

REPORT INFORMATION
  Report Type: 
  Country: None (occurrence: None)
  Receive Date: 20041112
  Receipt Date: 20041102
  Transmission Date: 20050328
  Serious: Yes (Death)
  Sender: FDA-Public Use
  Company Number: 2004242507US

PATIENT
  Age: 63 Year
  Sex: Male

DRUGS (2)
  1. CELEBREX [Suspect]
  2. THALIDOMIDE (THALIDOMIDE) [Suspect]
     Indication: BRAIN NEOPLASM
     Dosage: 400 MG ,QD, ORAL
     Route: 048
     Dates: start: 20040622, end: 20040827

REACTIONS (5)
  - DISEASE PROGRESSION [None]
  - DIVERTICULITIS [None]
  - HYPOTENSION [None]
  - RENAL FAILURE [None]
  - SEPSIS [None]
